FAERS Safety Report 18453678 (Version 6)
Quarter: 2022Q1

REPORT INFORMATION
  Report Type: Spontaneous
  Country: US (occurrence: US)
  Receive Date: 20201102
  Receipt Date: 20220303
  Transmission Date: 20220423
  Serious: Yes (Other)
  Sender: FDA-Public Use
  Company Number: US-VERTEX PHARMACEUTICALS-2020-021185

PATIENT
  Age: 29 Year
  Sex: Female
  Weight: 67 kg

DRUGS (57)
  1. TRIKAFTA [Suspect]
     Active Substance: ELEXACAFTOR\IVACAFTOR\TEZACAFTOR
     Indication: Cystic fibrosis
     Dosage: 2 ORANGE TABS IN AM AND 1 BLUE TAB IN PM
     Route: 048
     Dates: start: 20201005, end: 2020
  2. TRIKAFTA [Suspect]
     Active Substance: ELEXACAFTOR\IVACAFTOR\TEZACAFTOR
     Dosage: 2 ORANGE TABS EVERY OTHER MORNING ALTERNATE WITH 1 BLUE TAB EVERY OTHER MORNING, SKIP EVENING DOSE
     Route: 048
     Dates: start: 2020
  3. ADVAIR HFA [Concomitant]
     Active Substance: FLUTICASONE PROPIONATE\SALMETEROL XINAFOATE
     Dosage: 115-21 MCG
  4. ATORVASTATIN CALCIUM [Concomitant]
     Active Substance: ATORVASTATIN CALCIUM
     Dosage: 10 MG
  5. ATORVASTATIN [Concomitant]
     Active Substance: ATORVASTATIN
     Dosage: 20 MG ORAL TABLET; QDAY
     Route: 048
  6. AZITHROMYCIN [Concomitant]
     Active Substance: AZITHROMYCIN
     Dosage: 250 MG; TABLET; QMWF
     Route: 048
  7. BACTRIM [Concomitant]
     Active Substance: SULFAMETHOXAZOLE\TRIMETHOPRIM
     Dosage: 400-80 MG
  8. BASAGLAR KWIKPEN [Concomitant]
     Active Substance: INSULIN GLARGINE
  9. CETIRIZINE [Concomitant]
     Active Substance: CETIRIZINE HYDROCHLORIDE
     Dosage: PO
     Route: 048
  10. CRESEMBA [Concomitant]
     Active Substance: ISAVUCONAZONIUM SULFATE
     Dosage: 186 MG; CAPSULE DAILY
     Route: 048
  11. CRANBERRY [Concomitant]
     Active Substance: CRANBERRY
     Dosage: 200 MG
  12. FISH OIL [Concomitant]
     Active Substance: FISH OIL
     Dosage: 100-150 MG CAPSULE
  13. FLONASE ALLERGY RELIEF [Concomitant]
     Active Substance: FLUTICASONE PROPIONATE
     Dosage: 0.05 MG/INH
  14. FLUTICASONE PROPIONATE [Concomitant]
     Active Substance: FLUTICASONE PROPIONATE
     Dosage: 50 MCG
  15. HUMALOG [Concomitant]
     Active Substance: INSULIN LISPRO
     Dosage: 100 UNIT/ ML; INJECTABLE SOLUTION
  16. LEXAPRO [Concomitant]
     Active Substance: ESCITALOPRAM OXALATE
     Dosage: 20 MG; QDAY
     Route: 048
  17. MYCOPHENOLATE MOFETIL [Concomitant]
     Active Substance: MYCOPHENOLATE MOFETIL
     Dosage: CAPSULE
     Route: 048
  18. MIRALAX [Concomitant]
     Active Substance: POLYETHYLENE GLYCOL 3350
     Dosage: 17G/ DOSE POWDER
  19. MAGNESIUM [Concomitant]
     Active Substance: MAGNESIUM
     Dosage: 200 MG
  20. NEXIUM I.V. [Concomitant]
     Active Substance: ESOMEPRAZOLE SODIUM
     Dosage: 20 MG
  21. NEXIUM I.V. [Concomitant]
     Active Substance: ESOMEPRAZOLE SODIUM
     Dosage: 40 MG ORAL CAPSULE
     Route: 048
  22. PREDNISONE [Concomitant]
     Active Substance: PREDNISONE
     Dosage: 10 MG
  23. PREDNISONE [Concomitant]
     Active Substance: PREDNISONE
     Dosage: 2.5 MG TABLET; QAM
     Route: 048
  24. PREDNISONE [Concomitant]
     Active Substance: PREDNISONE
     Dosage: 5 MG; TABLET; QAM
     Route: 048
  25. TUMS [Concomitant]
     Active Substance: CALCIUM CARBONATE
     Dosage: 500 MG
  26. TUMS [Concomitant]
     Active Substance: CALCIUM CARBONATE
     Dosage: ULTRA; 1000 MG
     Route: 048
  27. TACROLIMUS [Concomitant]
     Active Substance: TACROLIMUS
     Dosage: 1 MG; CAPSULE
     Route: 048
  28. TACROLIMUS [Concomitant]
     Active Substance: TACROLIMUS
     Dosage: 5 MG; CAPSULE
     Route: 048
  29. URSODIOL [Concomitant]
     Active Substance: URSODIOL
     Dosage: 300 MG, BID
     Route: 048
  30. CHOLECALCIFEROL [Concomitant]
     Active Substance: CHOLECALCIFEROL
     Dosage: 10 MICROGRAM
  31. CHOLECALCIFEROL [Concomitant]
     Active Substance: CHOLECALCIFEROL
     Dosage: D3; 50 MCG, QDAY
     Route: 048
  32. VALCYTE [Concomitant]
     Active Substance: VALGANCICLOVIR HYDROCHLORIDE
     Dosage: 450 MG; QHS
     Route: 048
  33. VANCOCIN [Concomitant]
     Active Substance: VANCOMYCIN HYDROCHLORIDE
     Dosage: 250 MG
  34. ZYRTEC [Concomitant]
     Active Substance: CETIRIZINE HYDROCHLORIDE
     Dosage: 10MG
  35. ZENPEP [Concomitant]
     Active Substance: PANCRELIPASE AMYLASE\PANCRELIPASE LIPASE\PANCRELIPASE PROTEASE
     Dosage: 25000-79000-105000 UNITS; 5 CAPS W MEALS
  36. ZENPEP [Concomitant]
     Active Substance: PANCRELIPASE AMYLASE\PANCRELIPASE LIPASE\PANCRELIPASE PROTEASE
     Dosage: 25000-79000-105000 UNITS; 3 CAP W SNACKS
  37. ZOLEDRONIC ACID [Concomitant]
     Active Substance: ZOLEDRONIC ACID
     Dosage: 4 MG/ 100 ML;
     Route: 041
  38. TOBRAMYCIN [Concomitant]
     Active Substance: TOBRAMYCIN
     Dosage: 75 MG/ ML
  39. SYMBICORT [Concomitant]
     Active Substance: BUDESONIDE\FORMOTEROL FUMARATE DIHYDRATE
     Dosage: 160 MCG
  40. SODIUM CHLORIDE [Concomitant]
     Active Substance: SODIUM CHLORIDE
     Dosage: BID
  41. IRON [Concomitant]
     Active Substance: IRON
     Dosage: SLOW RELEASE; QDAY
     Route: 048
  42. SIMETHICONE (DIMETHICONE) [Concomitant]
     Active Substance: DIMETHICONE
  43. PROAIR HFA [Concomitant]
     Active Substance: ALBUTEROL SULFATE
     Dosage: 90 MCG; 1 PUFF
  44. ONDANSETRON [Concomitant]
     Active Substance: ONDANSETRON
     Dosage: 4 MG TABLET
     Route: 048
  45. NOVOLOG [Concomitant]
     Active Substance: INSULIN ASPART
     Dosage: FLEXPEN; 100 UNIT/ ML
  46. MIRTAZAPINE [Concomitant]
     Active Substance: MIRTAZAPINE
     Dosage: 7.5 MG; TABLET; QHS
     Route: 048
  47. METOPROLOL [Concomitant]
     Active Substance: METOPROLOL
     Dosage: TARTRATE; 25 MG; TABLET
     Route: 048
  48. MELATONIN [Concomitant]
     Active Substance: MELATONIN
     Dosage: 5 MG TABLET; QHS
     Route: 048
  49. MAGNESIUM OXIDE [Concomitant]
     Active Substance: MAGNESIUM OXIDE
     Dosage: 400 MG
     Route: 048
  50. LINZESS [Concomitant]
     Active Substance: LINACLOTIDE
     Dosage: 145 MCG; CAPSULE; QDAY
     Route: 048
  51. GOLYTELY [Concomitant]
     Active Substance: POLYETHYLENE GLYCOL 3350\POTASSIUM CHLORIDE\SODIUM BICARBONATE\SODIUM CHLORIDE\SODIUM SULFATE
     Dosage: ORAL POWDER
  52. SODIUM PICOSULFATE [Concomitant]
     Active Substance: SODIUM PICOSULFATE
     Dosage: 5 MG; 1 TABLET
     Route: 048
  53. DEPO-PROVERA [Concomitant]
     Active Substance: MEDROXYPROGESTERONE ACETATE
     Dosage: 150 MG
     Route: 030
  54. DEKAS ESSENTIAL [Concomitant]
     Dosage: 1 CAP
     Route: 048
  55. COMPAZINE [Concomitant]
     Active Substance: PROCHLORPERAZINE MALEATE
     Dosage: 25 MG RECTAL SUPPOSITORY
  56. CHELATED MAGNESIUM [MAGNESIUM CHELATE] [Concomitant]
     Dosage: 100 MG; 2 TAB
  57. BACTRIM DS [Concomitant]
     Active Substance: SULFAMETHOXAZOLE\TRIMETHOPRIM
     Dosage: 800 MG - 160 MG; 1 TAB; QMWF
     Route: 048

REACTIONS (5)
  - Lung transplant rejection [Recovering/Resolving]
  - Tenderness [Not Recovered/Not Resolved]
  - Decreased appetite [Not Recovered/Not Resolved]
  - Chromaturia [Unknown]
  - Dehydration [Unknown]

NARRATIVE: CASE EVENT DATE: 20201001
